FAERS Safety Report 5317084-9 (Version None)
Quarter: 2007Q2

REPORT INFORMATION
  Report Type: 
  Country: None (occurrence: None)
  Receive Date: 20070504
  Receipt Date: 20070420
  Transmission Date: 20071010
  Serious: Yes (Other)
  Sender: FDA-Public Use
  Company Number: JP-ROCHE-458325

PATIENT
  Age: 12 Year
  Sex: Female

DRUGS (4)
  1. TAMIFLU [Suspect]
     Route: 048
     Dates: start: 20060726, end: 20060726
  2. CLARITHROMYCIN [Concomitant]
     Route: 048
  3. METHISTA [Concomitant]
     Route: 048
  4. CALONAL [Concomitant]
     Dosage: DOSE FORM: FINE GRANULE.
     Route: 048
     Dates: start: 20060727, end: 20060727

REACTIONS (1)
  - DEPRESSED LEVEL OF CONSCIOUSNESS [None]
